FAERS Safety Report 9323710 (Version 1)
Quarter: 2013Q2

REPORT INFORMATION
  Report Type: Spontaneous
  Country: DE (occurrence: DE)
  Receive Date: 20130603
  Receipt Date: 20130603
  Transmission Date: 20140414
  Serious: Yes (Hospitalization)
  Sender: FDA-Public Use
  Company Number: DE-ELI_LILLY_AND_COMPANY-DE201305006561

PATIENT
  Sex: Female

DRUGS (2)
  1. FORSTEO [Suspect]
     Indication: OSTEOPOROSIS
     Dosage: UNK, QD
     Route: 058
     Dates: start: 20120221, end: 201304
  2. FORSTEO [Suspect]
     Dosage: UNK, QD
     Route: 058
     Dates: start: 201304

REACTIONS (3)
  - Jaw fracture [Unknown]
  - Fall [Unknown]
  - Oedema peripheral [Unknown]
